FAERS Safety Report 9247909 (Version 1)
Quarter: 2013Q1

REPORT INFORMATION
  Report Type: Spontaneous
  Country: US (occurrence: None)
  Receive Date: 20130305
  Receipt Date: 20130305
  Transmission Date: 20140127
  Serious: Yes (Other)
  Sender: FDA-Public Use
  Company Number: 163-21880-12092107

PATIENT
  Age: 80 Year
  Sex: Female
  Weight: 65.91 kg

DRUGS (1)
  1. REVLIMID [Suspect]
     Indication: MYELODYSPLASTIC SYNDROME
     Dosage: 1 IN 2 D
     Route: 048
     Dates: start: 20120718

REACTIONS (2)
  - Fatigue [None]
  - Dizziness [None]
